FAERS Safety Report 7706327-X (Version None)
Quarter: 2011Q3

REPORT INFORMATION
  Report Type: 
  Country: None (occurrence: None)
  Receive Date: 20110824
  Receipt Date: 20110821
  Transmission Date: 20111222
  Serious: Yes (Other)
  Sender: FDA-Public Use
  Company Number: EG-ROCHE-798023

PATIENT
  Sex: Male

DRUGS (2)
  1. AVASTIN [Suspect]
     Indication: COLORECTAL CANCER
     Route: 042
  2. XELODA [Suspect]
     Indication: COLORECTAL CANCER
     Route: 048

REACTIONS (1)
  - HEPATIC FAILURE [None]
